FAERS Safety Report 20706323 (Version 1)
Quarter: 2022Q2

REPORT INFORMATION
  Report Type: Spontaneous
  Country: JP (occurrence: JP)
  Receive Date: 20220413
  Receipt Date: 20220413
  Transmission Date: 20220721
  Serious: Yes (Other)
  Sender: FDA-Public Use
  Company Number: JP-AMERICAN REGENT INC-2022001021

PATIENT
  Age: 8 Decade
  Sex: Male

DRUGS (1)
  1. ADENOSCAN [Suspect]
     Active Substance: ADENOSINE
     Indication: Scan myocardial perfusion
     Dosage: UNK
     Route: 065

REACTIONS (4)
  - Intensive care unit acquired weakness [Recovering/Resolving]
  - Bronchospasm [Recovering/Resolving]
  - Delirium [Unknown]
  - Cognitive disorder [Recovered/Resolved]
